FAERS Safety Report 21775631 (Version 5)
Quarter: 2023Q4

REPORT INFORMATION
  Report Type: Spontaneous
  Country: US (occurrence: US)
  Receive Date: 20221226
  Receipt Date: 20231103
  Transmission Date: 20240110
  Serious: No
  Sender: FDA-Public Use
  Company Number: US-PHARMAESSENTIA CORPORATION-US-2022-PEC-000928

PATIENT
  Sex: Female

DRUGS (9)
  1. BESREMI [Suspect]
     Active Substance: ROPEGINTERFERON ALFA-2B-NJFT
     Indication: Polycythaemia vera
     Dosage: 50 MCG
     Route: 065
  2. BESREMI [Suspect]
     Active Substance: ROPEGINTERFERON ALFA-2B-NJFT
     Dosage: 250 MCG, Q2W
     Route: 065
  3. BESREMI [Suspect]
     Active Substance: ROPEGINTERFERON ALFA-2B-NJFT
     Dosage: 300 MCG
     Route: 065
  4. BESREMI [Suspect]
     Active Substance: ROPEGINTERFERON ALFA-2B-NJFT
     Dosage: 500 MCG, Q2W
     Route: 065
  5. BESREMI [Suspect]
     Active Substance: ROPEGINTERFERON ALFA-2B-NJFT
     Dosage: 400 MCG
     Route: 065
  6. BESREMI [Suspect]
     Active Substance: ROPEGINTERFERON ALFA-2B-NJFT
     Dosage: 350 MCG, Q2W
     Route: 058
  7. BESREMI [Suspect]
     Active Substance: ROPEGINTERFERON ALFA-2B-NJFT
     Dosage: 350 MCG, Q2W
     Route: 058
  8. BESREMI [Suspect]
     Active Substance: ROPEGINTERFERON ALFA-2B-NJFT
     Dosage: 500 MCG, Q2W
     Route: 058
  9. BESREMI [Suspect]
     Active Substance: ROPEGINTERFERON ALFA-2B-NJFT
     Dosage: 300 MCG, Q2W
     Route: 058
     Dates: start: 20230209

REACTIONS (36)
  - Presyncope [Unknown]
  - Product storage error [Unknown]
  - Teeth brittle [Recovering/Resolving]
  - Tooth injury [Recovering/Resolving]
  - Amnesia [Recovering/Resolving]
  - Trichorrhexis [Recovered/Resolved]
  - Haematocrit increased [Recovering/Resolving]
  - Product administration error [Unknown]
  - Anger [Recovering/Resolving]
  - Impatience [Recovering/Resolving]
  - Abdominal discomfort [Recovering/Resolving]
  - Blood potassium increased [Recovering/Resolving]
  - Crying [Recovering/Resolving]
  - Disturbance in attention [Recovering/Resolving]
  - Inappropriate schedule of product administration [Unknown]
  - Product dose omission in error [Unknown]
  - Full blood count abnormal [Unknown]
  - Impaired quality of life [Recovering/Resolving]
  - Product physical issue [Unknown]
  - Agitation [Recovering/Resolving]
  - Platelet count increased [Not Recovered/Not Resolved]
  - Visual impairment [Recovering/Resolving]
  - Confusional state [Recovering/Resolving]
  - Abdominal distension [Recovering/Resolving]
  - Insomnia [Recovering/Resolving]
  - Irritability [Recovering/Resolving]
  - Asthenia [Recovering/Resolving]
  - Injection site extravasation [Recovering/Resolving]
  - Alopecia [Not Recovered/Not Resolved]
  - Depressed mood [Recovering/Resolving]
  - Fatigue [Not Recovered/Not Resolved]
  - Abdominal pain upper [Recovering/Resolving]
  - Bone pain [Recovering/Resolving]
  - Depression [Not Recovered/Not Resolved]
  - Erythema [Recovering/Resolving]
  - Dry skin [Recovering/Resolving]

NARRATIVE: CASE EVENT DATE: 20221229
